FAERS Safety Report 8473216-5 (Version None)
Quarter: 2012Q2

REPORT INFORMATION
  Report Type: 
  Country: None (occurrence: None)
  Receive Date: 20120627
  Receipt Date: 20120620
  Transmission Date: 20120825
  Serious: Yes (Hospitalization, Other)
  Sender: FDA-Public Use
  Company Number: DE-ABBOTT-12P-062-0915180-00

PATIENT
  Age: 53 Year
  Sex: Male
  Weight: 61 kg

DRUGS (8)
  1. PREDNISOLONE [Suspect]
     Dosage: 5 MG DAILY
     Dates: start: 20120619
  2. VITAMIN B-12 [Concomitant]
     Indication: PRODUCT USED FOR UNKNOWN INDICATION
     Route: 042
     Dates: start: 20110228
  3. VITAMIN B-12 [Concomitant]
     Route: 042
     Dates: start: 20120619
  4. HUMIRA [Suspect]
     Indication: CROHN'S DISEASE
     Route: 058
     Dates: start: 20110906, end: 20120228
  5. HUMIRA [Suspect]
     Dates: start: 20120301, end: 20120411
  6. PREDNISOLONE [Suspect]
     Indication: PRODUCT USED FOR UNKNOWN INDICATION
     Dosage: 7.5 MG DAILY
     Dates: start: 20000804
  7. BISOPROLOL FUMARATE [Concomitant]
     Indication: PRODUCT USED FOR UNKNOWN INDICATION
     Dosage: DAILY
     Dates: start: 20010807
  8. CITALOPRAM HYDROBROMIDE [Concomitant]
     Indication: PRODUCT USED FOR UNKNOWN INDICATION
     Dosage: DAILY
     Dates: start: 20110906

REACTIONS (4)
  - WOUND ABSCESS [None]
  - COLON CANCER [None]
  - ENTEROCOLONIC FISTULA [None]
  - IMPAIRED HEALING [None]
